FAERS Safety Report 10361133 (Version 4)
Quarter: 2014Q4

REPORT INFORMATION
  Report Type: Spontaneous
  Country: FR (occurrence: None)
  Receive Date: 20140731
  Receipt Date: 20141008
  Transmission Date: 20150528
  Serious: Yes (Hospitalization)
  Sender: FDA-Public Use
  Company Number: AXC-2014-000470

PATIENT
  Age: 57 Year
  Sex: Female

DRUGS (10)
  1. REMICADE [Suspect]
     Active Substance: INFLIXIMAB
     Indication: CROHN^S DISEASE
     Route: 042
     Dates: start: 20080101
  2. CACIT D3 (CALCIUM CARBONATE, COLECALCIFEROL) [Concomitant]
  3. AMLOR (AMLODIPINE BESILATE) [Concomitant]
     Active Substance: AMLODIPINE BESYLATE
  4. GLUCOPHAGE (METFORMIN HYDROCHLORIDE) [Concomitant]
  5. LEVOTHYROX (LEVOTHYROXINE SODIUM) [Concomitant]
     Active Substance: LEVOTHYROXINE SODIUM
  6. CORTANCYL (PREDNISONE) [Concomitant]
     Active Substance: PREDNISONE
  7. DOLIPRANE [Concomitant]
     Active Substance: ACETAMINOPHEN
  8. XANAX [Concomitant]
     Active Substance: ALPRAZOLAM
  9. DELURSAN (URSODEOXYCHOLIC ACID) TABLET [Suspect]
     Active Substance: URSODIOL
     Indication: PRODUCT USED FOR UNKNOWN INDICATION
     Dosage: DURATION UNK
     Route: 048
     Dates: start: 201403
  10. INEXIUM (ESOMEPRAZOLE MAGNESIUM) [Concomitant]
     Active Substance: ESOMEPRAZOLE MAGNESIUM

REACTIONS (4)
  - Rash papular [None]
  - Photosensitivity reaction [None]
  - Pruritus [None]
  - Cutaneous lupus erythematosus [None]

NARRATIVE: CASE EVENT DATE: 20140301
